FAERS Safety Report 5774874-6 (Version None)
Quarter: 2008Q2

REPORT INFORMATION
  Report Type: 
  Country: None (occurrence: None)
  Receive Date: 20080617
  Receipt Date: 20080605
  Transmission Date: 20081010
  Serious: Yes (Hospitalization, Other)
  Sender: FDA-Public Use
  Company Number: MX-ELI_LILLY_AND_COMPANY-MX200806001399

PATIENT
  Age: 33 Year
  Sex: Female

DRUGS (3)
  1. XIGRIS [Suspect]
     Indication: BLOOD DISORDER
     Dosage: 20 MG, UNK
     Route: 042
     Dates: start: 20080501, end: 20080101
  2. XIGRIS [Suspect]
     Dosage: 20 MG, UNKNOWN
     Route: 042
     Dates: start: 20080601, end: 20080604
  3. ANTIBIOTICS [Concomitant]
     Dosage: UNK, UNKNOWN
     Route: 065

REACTIONS (3)
  - GASTROINTESTINAL HAEMORRHAGE [None]
  - PSEUDOMONAS INFECTION [None]
  - THROMBOCYTOPENIA [None]
